FAERS Safety Report 5462293-1 (Version None)
Quarter: 2007Q3

REPORT INFORMATION
  Report Type: 
  Country: None (occurrence: None)
  Receive Date: 20070920
  Receipt Date: 20070618
  Transmission Date: 20080115
  Serious: No
  Sender: FDA-Public Use
  Company Number: A0656915A

PATIENT
  Age: 69 Year
  Sex: Male

DRUGS (1)
  1. ABREVA [Suspect]

REACTIONS (4)
  - CHEILITIS [None]
  - LIP PAIN [None]
  - ORAL INFECTION [None]
  - SKIN ULCER [None]
